FAERS Safety Report 21998591 (Version 2)
Quarter: 2023Q1

REPORT INFORMATION
  Report Type: Spontaneous
  Country: CA (occurrence: CA)
  Receive Date: 20230216
  Receipt Date: 20230329
  Transmission Date: 20230418
  Serious: Yes (Hospitalization, Other)
  Sender: FDA-Public Use
  Company Number: CA-002147023-NVSC2023CA030994

PATIENT
  Age: 72 Year
  Sex: Male

DRUGS (4)
  1. DOCETAXEL [Suspect]
     Active Substance: DOCETAXEL
     Indication: Prostate cancer
     Dosage: UNK
     Route: 065
  2. DOCETAXEL [Suspect]
     Active Substance: DOCETAXEL
     Indication: Bone cancer
     Dosage: UNK
     Route: 065
  3. ELIGARD [Suspect]
     Active Substance: LEUPROLIDE ACETATE
     Indication: Prostate cancer
     Dosage: 22.5 MG, Q3MO (1 EVERY 3 MONTHS (POWDER FOR SUSPENSION, SUSTAINED RELEASE))
     Route: 058
  4. ELIGARD [Suspect]
     Active Substance: LEUPROLIDE ACETATE
     Dosage: 22.5 MG, Q3MO (1 EVERY 3 MONTHS (POWDER FOR SUSPENSION, SUSTAINED RELEASE))
     Route: 058

REACTIONS (14)
  - Infection [Unknown]
  - Adverse drug reaction [Unknown]
  - Oedema peripheral [Unknown]
  - Immune system disorder [Unknown]
  - Prostatic specific antigen increased [Unknown]
  - Arrhythmia [Unknown]
  - Asthenia [Unknown]
  - Chills [Unknown]
  - Decreased appetite [Unknown]
  - Fatigue [Unknown]
  - Nausea [Unknown]
  - Pyrexia [Unknown]
  - Prostate cancer [Unknown]
  - Neoplasm progression [Unknown]
